FAERS Safety Report 10503932 (Version 1)
Quarter: 2014Q4

REPORT INFORMATION
  Report Type: Spontaneous
  Country: US (occurrence: None)
  Receive Date: 20141007
  Receipt Date: 20141007
  Transmission Date: 20150528
  Serious: Yes (Disabling)
  Sender: FDA-Public Use
  Company Number: None

PATIENT
  Age: 59 Year
  Sex: Female
  Weight: 65.77 kg

DRUGS (1)
  1. CIPRO [Suspect]
     Active Substance: CIPROFLOXACIN HYDROCHLORIDE
     Indication: PRODUCT USED FOR UNKNOWN INDICATION

REACTIONS (10)
  - Tendon pain [None]
  - Impaired healing [None]
  - Thinking abnormal [None]
  - Fibula fracture [None]
  - Tendon injury [None]
  - Ligament injury [None]
  - Pain [None]
  - Dizziness [None]
  - Gait disturbance [None]
  - Pain in extremity [None]

NARRATIVE: CASE EVENT DATE: 20140720
